FAERS Safety Report 10733340 (Version 4)
Quarter: 2016Q1

REPORT INFORMATION
  Report Type: Report from Study
  Country: IL (occurrence: IL)
  Receive Date: 20150123
  Receipt Date: 20160301
  Transmission Date: 20160525
  Serious: Yes (Other)
  Sender: FDA-Public Use
  Company Number: PHHY2014IL154323

PATIENT
  Age: 76 Year
  Sex: Male
  Weight: 101.5 kg

DRUGS (1)
  1. TASIGNA [Suspect]
     Active Substance: NILOTINIB
     Indication: CHRONIC MYELOID LEUKAEMIA
     Dosage: 400 MG, QD
     Route: 048

REACTIONS (8)
  - Hepatic lesion [Not Recovered/Not Resolved]
  - Bone density decreased [Not Recovered/Not Resolved]
  - Blood testosterone decreased [Unknown]
  - Pulmonary mass [Not Recovered/Not Resolved]
  - Blood calcitonin increased [Not Recovered/Not Resolved]
  - Hepatic cancer [Unknown]
  - Second primary malignancy [Unknown]
  - Malignant neoplasm progression [Unknown]

NARRATIVE: CASE EVENT DATE: 20151208
